FAERS Safety Report 8707696 (Version 7)
Quarter: 2013Q2

REPORT INFORMATION
  Report Type: Report from Study
  Country: NL (occurrence: NL)
  Receive Date: 20120806
  Receipt Date: 20130621
  Transmission Date: 20140414
  Serious: Yes (Death, Life-Threatening, Hospitalization, Other)
  Sender: FDA-Public Use
  Company Number: NL-BIOGENIDEC-2012BI028301

PATIENT
  Age: 49 Year
  Sex: Male
  Weight: 69 kg

DRUGS (2)
  1. TYSABRI [Suspect]
     Indication: MULTIPLE SCLEROSIS
     Route: 042
     Dates: start: 20110113, end: 20120626
  2. 3-4 DIAMINOPYRIDINE [Concomitant]
     Indication: FATIGUE
     Dates: start: 20120223, end: 20120723

REACTIONS (6)
  - Hypophagia [Fatal]
  - Fluid intake reduced [Fatal]
  - Progressive multifocal leukoencephalopathy [Not Recovered/Not Resolved]
  - Immune reconstitution inflammatory syndrome [Unknown]
  - Multiple sclerosis relapse [Not Recovered/Not Resolved]
  - Epilepsy [Unknown]
